FAERS Safety Report 8934774 (Version 1)
Quarter: 2012Q4

REPORT INFORMATION
  Report Type: 
  Country: FR (occurrence: FR)
  Receive Date: 20121129
  Receipt Date: 20121129
  Transmission Date: 20130627
  Serious: Yes (Other)
  Sender: FDA-Public Use
  Company Number: FR-UCBSA-070390

PATIENT
  Age: 72 Year
  Sex: Male
  Weight: 71 kg

DRUGS (6)
  1. NEUPRO [Suspect]
     Indication: RESTLESS LEGS SYNDROME
     Route: 062
     Dates: start: 201205
  2. XATRAL [Concomitant]
     Indication: PROSTATIC ADENOMA
     Route: 048
     Dates: start: 2000
  3. PROPANOLOL [Concomitant]
     Indication: HYPERTENSION
     Route: 048
     Dates: start: 2010
  4. ATACAND [Concomitant]
     Indication: HYPERTENSION
     Route: 048
     Dates: start: 2000
  5. TOPALGIC [Concomitant]
     Indication: POST-TRAUMATIC PAIN
     Route: 048
     Dates: start: 1999
  6. TOPALGIC [Concomitant]
     Indication: RESTLESS LEGS SYNDROME
     Route: 048
     Dates: start: 1999

REACTIONS (5)
  - Application site reaction [Not Recovered/Not Resolved]
  - Rash papular [Not Recovered/Not Resolved]
  - Eczema weeping [Not Recovered/Not Resolved]
  - Pruritus [Not Recovered/Not Resolved]
  - Photosensitivity reaction [Not Recovered/Not Resolved]
